FAERS Safety Report 6247164-5 (Version None)
Quarter: 2009Q2

REPORT INFORMATION
  Report Type: 
  Country: None (occurrence: None)
  Receive Date: 20090626
  Receipt Date: 20090617
  Transmission Date: 20091009
  Serious: Yes (Other)
  Sender: FDA-Public Use
  Company Number: JP-AVENTIS-200911706JP

PATIENT
  Age: 76 Year
  Sex: Female

DRUGS (3)
  1. ALLEGRA [Suspect]
     Indication: SKIN DISORDER
     Route: 048
     Dates: start: 20090101, end: 20090101
  2. ACINON [Concomitant]
     Route: 048
     Dates: start: 20050627
  3. ALL OTHER THERAPEUTIC PRODUCTS [Concomitant]
     Route: 048
     Dates: start: 20080813

REACTIONS (1)
  - AGRANULOCYTOSIS [None]
